FAERS Safety Report 14264143 (Version 1)
Quarter: 2017Q4

REPORT INFORMATION
  Report Type: Spontaneous
  Country: NL (occurrence: NL)
  Receive Date: 20171208
  Receipt Date: 20171208
  Transmission Date: 20180321
  Serious: Yes (Other)
  Sender: FDA-Public Use
  Company Number: PHHY2017NL179032

PATIENT
  Age: 45 Year
  Sex: Male

DRUGS (4)
  1. VORICONAZOLE. [Suspect]
     Active Substance: VORICONAZOLE
     Dosage: 600 MG, QD
     Route: 065
  2. VORICONAZOLE. [Suspect]
     Active Substance: VORICONAZOLE
     Indication: SYSTEMIC MYCOSIS
     Dosage: 400 MG, QD
     Route: 065
  3. VORICONAZOLE. [Suspect]
     Active Substance: VORICONAZOLE
     Dosage: 800 MG, QD
     Route: 065
  4. VORICONAZOLE. [Suspect]
     Active Substance: VORICONAZOLE
     Dosage: 200 MG, QD
     Route: 062

REACTIONS (7)
  - Gamma-glutamyltransferase increased [Unknown]
  - Aspartate aminotransferase increased [Unknown]
  - Intentional product use issue [Unknown]
  - Alanine aminotransferase increased [Unknown]
  - Product use issue [Unknown]
  - Drug level below therapeutic [Recovered/Resolved]
  - Hepatic function abnormal [Unknown]
